FAERS Safety Report 7415941-0 (Version None)
Quarter: 2011Q2

REPORT INFORMATION
  Report Type: 
  Country: None (occurrence: None)
  Receive Date: 20110414
  Receipt Date: 20110404
  Transmission Date: 20111010
  Serious: Yes (Other)
  Sender: FDA-Public Use
  Company Number: PHHY2011US28177

PATIENT
  Age: 38 Year
  Sex: Female

DRUGS (1)
  1. METHIMAZOLE [Suspect]
     Indication: BASEDOW'S DISEASE
     Dosage: UNK UKN, UNK

REACTIONS (3)
  - DRUG EXPOSURE DURING PREGNANCY [None]
  - UMBILICAL CORD SHORT [None]
  - UMBILICAL CORD HAEMORRHAGE [None]
